FAERS Safety Report 12690628 (Version 2)
Quarter: 2016Q3

REPORT INFORMATION
  Report Type: Report from Study
  Country: LU (occurrence: LU)
  Receive Date: 20160826
  Receipt Date: 20160829
  Transmission Date: 20161109
  Serious: Yes (Death, Hospitalization)
  Sender: FDA-Public Use
  Company Number: LU-ABBVIE-16P-098-1599705-00

PATIENT
  Age: 88 Year
  Sex: Male

DRUGS (11)
  1. CRESTOR [Concomitant]
     Active Substance: ROSUVASTATIN CALCIUM
     Indication: PRODUCT USED FOR UNKNOWN INDICATION
     Route: 065
  2. SERLAIN [Concomitant]
     Active Substance: SERTRALINE HYDROCHLORIDE
     Indication: PRODUCT USED FOR UNKNOWN INDICATION
     Route: 065
  3. DUODOPA [Suspect]
     Active Substance: CARBIDOPA\LEVODOPA
     Dosage: AM=10ML; CD=2ML/H FOR 16HRS; ED=1ML
     Route: 050
     Dates: start: 20160330, end: 20160331
  4. COVERAM [Concomitant]
     Active Substance: AMLODIPINE\PERINDOPRIL
     Indication: PRODUCT USED FOR UNKNOWN INDICATION
     Route: 065
  5. DUODOPA [Suspect]
     Active Substance: CARBIDOPA\LEVODOPA
     Dosage: AM= 8 ML; CD= 2.7 ML/H DURING 16 HRS; ED= 1.5 ML
     Route: 050
     Dates: start: 20160712
  6. DUODOPA [Suspect]
     Active Substance: CARBIDOPA\LEVODOPA
     Indication: PARKINSON^S DISEASE
     Dosage: AM=12ML; CD=3.1ML/H FOR 16HRS; ED=1.5ML
     Route: 050
     Dates: start: 20160329, end: 20160330
  7. DUODOPA [Suspect]
     Active Substance: CARBIDOPA\LEVODOPA
     Dosage: AM=8ML; CD=2.4ML/H FOR 16HRS; ED=1ML
     Route: 050
     Dates: start: 20160404, end: 20160630
  8. DUODOPA [Suspect]
     Active Substance: CARBIDOPA\LEVODOPA
     Dosage: AM= 8 ML; CD= 2.6 ML/H DURING 16 HRS; ED= 1 ML
     Route: 050
     Dates: start: 20160630, end: 20160705
  9. DUODOPA [Suspect]
     Active Substance: CARBIDOPA\LEVODOPA
     Dosage: AM= 8 ML; CD= 2.8 ML/H DURING 16 HRS; ED= 1.5 ML
     Route: 050
     Dates: start: 20160705, end: 20160712
  10. TRANXENE T-TAB [Concomitant]
     Active Substance: CLORAZEPATE DIPOTASSIUM
     Indication: PRODUCT USED FOR UNKNOWN INDICATION
     Route: 065
  11. DUODOPA [Suspect]
     Active Substance: CARBIDOPA\LEVODOPA
     Dosage: AM=10ML; CD=2.3ML/H FOR 16HRS; ED=1ML
     Route: 050
     Dates: start: 20160331, end: 20160404

REACTIONS (13)
  - General physical health deterioration [Unknown]
  - Lung disorder [Unknown]
  - Vomiting [Unknown]
  - Muscular weakness [Unknown]
  - Asthenia [Unknown]
  - Dyskinesia [Recovered/Resolved]
  - Pneumonia [Fatal]
  - Device use issue [Unknown]
  - Bradycardia [Recovered/Resolved]
  - Renal failure [Unknown]
  - Hypophagia [Unknown]
  - Malaise [Unknown]
  - Dysphagia [Unknown]

NARRATIVE: CASE EVENT DATE: 2016
